FAERS Safety Report 7934806-9 (Version None)
Quarter: 2011Q4

REPORT INFORMATION
  Report Type: 
  Country: None (occurrence: None)
  Receive Date: 20111122
  Receipt Date: 20111108
  Transmission Date: 20120403
  Serious: Yes (Hospitalization, Other)
  Sender: FDA-Public Use
  Company Number: ZA-BAYER-2011-110322

PATIENT
  Age: 6 Week

DRUGS (1)
  1. ASPIRIN [Suspect]
     Dosage: UNK

REACTIONS (4)
  - PNEUMONIA [None]
  - GASTROENTERITIS [None]
  - TOXICITY TO VARIOUS AGENTS [None]
  - METABOLIC ACIDOSIS [None]
